FAERS Safety Report 8335401-2 (Version None)
Quarter: 2012Q2

REPORT INFORMATION
  Report Type: 
  Country: None (occurrence: None)
  Receive Date: 20120503
  Receipt Date: 20120427
  Transmission Date: 20120825
  Serious: Yes (Hospitalization)
  Sender: FDA-Public Use
  Company Number: JP-MERCK-1205USA00022

PATIENT
  Age: 60 Year
  Sex: Male

DRUGS (2)
  1. METFORMIN HCL [Concomitant]
     Route: 065
     Dates: start: 20110701, end: 20110801
  2. JANUVIA [Suspect]
     Indication: TYPE 2 DIABETES MELLITUS
     Route: 048
     Dates: start: 20101001, end: 20120310

REACTIONS (1)
  - DRUG ERUPTION [None]
